FAERS Safety Report 13042251 (Version 2)
Quarter: 2016Q4

REPORT INFORMATION
  Report Type: Spontaneous
  Country: JP (occurrence: JP)
  Receive Date: 20161219
  Receipt Date: 20161224
  Transmission Date: 20170207
  Serious: Yes (Hospitalization)
  Sender: FDA-Public Use
  Company Number: JP-SA-2016SA223145

PATIENT
  Age: 65 Year
  Sex: Male

DRUGS (8)
  1. ARTIST [Suspect]
     Active Substance: CARVEDILOL
     Route: 065
  2. LYXUMIA [Suspect]
     Active Substance: LIXISENATIDE
     Route: 058
  3. SPIRONOLACTONE. [Suspect]
     Active Substance: SPIRONOLACTONE
     Route: 065
  4. AMLODIPINE [Suspect]
     Active Substance: AMLODIPINE BESYLATE
     Route: 065
  5. VALSARTAN. [Suspect]
     Active Substance: VALSARTAN
     Route: 065
  6. FLUITRAN [Suspect]
     Active Substance: TRICHLORMETHIAZIDE
     Route: 065
  7. NOVORAPID [Concomitant]
     Active Substance: INSULIN ASPART
     Route: 058
  8. FUROSEMIDE. [Suspect]
     Active Substance: FUROSEMIDE
     Route: 065

REACTIONS (1)
  - Cardiac failure chronic [Unknown]
